FAERS Safety Report 9080463 (Version 3)
Quarter: 2014Q2

REPORT INFORMATION
  Report Type: Report from Study
  Country: CN (occurrence: CN)
  Receive Date: 20130218
  Receipt Date: 20140512
  Transmission Date: 20141212
  Serious: Yes (Death, Other)
  Sender: FDA-Public Use
  Company Number: PHHY2013CN015339

PATIENT
  Age: 42 Year
  Sex: Male

DRUGS (2)
  1. GLIVEC [Suspect]
     Indication: GASTROINTESTINAL STROMAL TUMOUR
     Dosage: 400 MG, DAILY
     Route: 048
     Dates: start: 20060410
  2. GLIVEC [Suspect]
     Indication: GASTROINTESTINAL NEOPLASM

REACTIONS (5)
  - Hepatic failure [Fatal]
  - Blood disorder [Unknown]
  - Malnutrition [Unknown]
  - Metastases to liver [Unknown]
  - Ascites [Unknown]
